FAERS Safety Report 12678543 (Version 3)
Quarter: 2016Q3

REPORT INFORMATION
  Report Type: Spontaneous
  Country: US (occurrence: US)
  Receive Date: 20160823
  Receipt Date: 20160902
  Transmission Date: 20161109
  Serious: Yes (Hospitalization)
  Sender: FDA-Public Use
  Company Number: US-PFIZER INC-2016397379

PATIENT
  Age: 76 Year
  Sex: Female
  Weight: 72 kg

DRUGS (6)
  1. LYRICA [Suspect]
     Active Substance: PREGABALIN
     Dosage: 25 MG, 3X/DAY (EVERY 8 HOURS)
  2. LYRICA [Suspect]
     Active Substance: PREGABALIN
     Indication: PAIN
     Dosage: 50 MG, 1X/DAY (BEDTIME)
  3. LYRICA [Suspect]
     Active Substance: PREGABALIN
     Dosage: 50 MG, 3X/DAY (DURING THE DAY, EVERY 8 HOURS)
  4. LYRICA [Suspect]
     Active Substance: PREGABALIN
     Dosage: 50 MG, 2X/DAY
  5. LYRICA [Suspect]
     Active Substance: PREGABALIN
     Dosage: 75 MG, DAILY (BEDTIME) (QD)
  6. LYRICA [Suspect]
     Active Substance: PREGABALIN
     Indication: NEUROPATHY PERIPHERAL
     Dosage: 175 MG, DAILY (EVERY 8 HOURS, 50 MG ONE TIME, 50 MG ANOTHER TIME AND 75 MG AT BED TIME)

REACTIONS (24)
  - Malaise [Unknown]
  - Emotional disorder [Unknown]
  - Paraesthesia [Unknown]
  - Injury [Unknown]
  - Pain [Unknown]
  - Vision blurred [Unknown]
  - Anger [Unknown]
  - Nervousness [Unknown]
  - Intentional product use issue [Unknown]
  - Condition aggravated [Not Recovered/Not Resolved]
  - Hallucination [Unknown]
  - Insomnia [Unknown]
  - Feeling abnormal [Unknown]
  - Burning sensation [Unknown]
  - Sleep disorder [Unknown]
  - Drug ineffective [Unknown]
  - Gait disturbance [Unknown]
  - Mental disorder [Not Recovered/Not Resolved]
  - Pre-existing condition improved [Unknown]
  - Musculoskeletal pain [Unknown]
  - Palpitations [Unknown]
  - Dizziness [Not Recovered/Not Resolved]
  - Feeling drunk [Unknown]
  - Therapeutic response unexpected [Unknown]
